FAERS Safety Report 8541194 (Version 2)
Quarter: 2012Q4

REPORT INFORMATION
  Report Type: Spontaneous
  Country: US (occurrence: None)
  Receive Date: 20120418
  Receipt Date: 20121220
  Transmission Date: 20130627
  Serious: Yes (Death)
  Sender: FDA-Public Use
  Company Number: 2012-159

PATIENT
  Age: 83 Year
  Sex: Female

DRUGS (2)
  1. PRIALT [Suspect]
     Indication: INTRACTABLE PAIN
     Dosage: UNK UG, ONCE/HOUR, INTRATHECAL; UNK MCG, ONCE/HOUR, INTRATHECAL
     Route: 037
     Dates: end: 20111130
  2. MORPHINE [Suspect]
     Indication: CANCER PAIN
     Dosage: ONCE/HOUR, INTRATHECAL
     Route: 037
     Dates: end: 20111130

REACTIONS (1)
  - Pancreatic carcinoma [None]
